FAERS Safety Report 19280091 (Version 1)
Quarter: 2021Q2

REPORT INFORMATION
  Report Type: Spontaneous
  Country: NO (occurrence: NO)
  Receive Date: 20210520
  Receipt Date: 20210520
  Transmission Date: 20210717
  Serious: Yes (Life-Threatening, Other)
  Sender: FDA-Public Use
  Company Number: NO-BIOVITRUM-2021NO4690

PATIENT
  Age: 3 Year
  Sex: Male

DRUGS (7)
  1. LACOSAMIDE. [Concomitant]
     Active Substance: LACOSAMIDE
  2. PHENOBARBITAL. [Concomitant]
     Active Substance: PHENOBARBITAL
  3. KINERET [Suspect]
     Active Substance: ANAKINRA
     Indication: STATUS EPILEPTICUS
     Route: 058
     Dates: start: 20210420, end: 20210428
  4. KETAMINE [Concomitant]
     Active Substance: KETAMINE
  5. MIDAZOLAM. [Concomitant]
     Active Substance: MIDAZOLAM
  6. THIOPENTAL [Concomitant]
     Active Substance: THIOPENTAL
  7. KEPPRA [Concomitant]
     Active Substance: LEVETIRACETAM

REACTIONS (1)
  - Pancytopenia [Unknown]

NARRATIVE: CASE EVENT DATE: 202104
